FAERS Safety Report 6250574-3 (Version None)
Quarter: 2009Q2

REPORT INFORMATION
  Report Type: 
  Country: None (occurrence: None)
  Receive Date: 20090630
  Receipt Date: 20090615
  Transmission Date: 20091009
  Serious: Yes (Hospitalization)
  Sender: FDA-Public Use
  Company Number: JP-PFIZER INC-2009230732

PATIENT
  Age: 71 Year

DRUGS (4)
  1. MIGLITOL [Suspect]
     Indication: DIABETES MELLITUS
     Dosage: UNK
     Route: 048
     Dates: end: 20090615
  2. AMARYL [Concomitant]
     Dosage: 1 MG, UNK
     Route: 048
     Dates: end: 20090615
  3. ACTOS [Concomitant]
     Dosage: UNK
     Route: 048
     Dates: start: 20090318, end: 20090615
  4. EUGLUCON [Concomitant]

REACTIONS (2)
  - INSOMNIA [None]
  - PRURITUS GENERALISED [None]
